FAERS Safety Report 7938879-9 (Version None)
Quarter: 2011Q4

REPORT INFORMATION
  Report Type: 
  Country: None (occurrence: None)
  Receive Date: 20111124
  Receipt Date: 20111115
  Transmission Date: 20120403
  Serious: Yes (Other)
  Sender: FDA-Public Use
  Company Number: GB-RANBAXY-2011R1-50491

PATIENT
  Age: 40 Year
  Sex: Male
  Weight: 100 kg

DRUGS (7)
  1. FLOXACILLIN SODIUM [Suspect]
     Indication: PRODUCT USED FOR UNKNOWN INDICATION
     Dosage: UNK
     Route: 042
     Dates: start: 20111102, end: 20111102
  2. CHLORHEXIDINE GLUCONATE [Suspect]
     Indication: PRODUCT USED FOR UNKNOWN INDICATION
     Dosage: UNK
     Route: 061
     Dates: start: 20111102, end: 20111102
  3. BUPIVACAINE HCL [Suspect]
     Indication: PERIPHERAL NERVE INJECTION
     Dosage: 62.5 MG, TOTAL
     Route: 030
     Dates: start: 20111102, end: 20111102
  4. GENTAMICIN [Suspect]
     Indication: ANTIBIOTIC PROPHYLAXIS
     Dosage: UNK
     Route: 037
     Dates: start: 20111102, end: 20111102
  5. REMIFENTANIL [Suspect]
     Indication: ANAESTHESIA PROCEDURE
     Dosage: 100 UG, TOTAL
     Route: 042
     Dates: start: 20111102, end: 20111102
  6. MIDAZOLAM [Suspect]
     Indication: SEDATIVE THERAPY
     Dosage: 2 MG, TOTAL
     Route: 042
     Dates: start: 20111102, end: 20111102
  7. PROPOFOL [Suspect]
     Indication: ANAESTHESIA PROCEDURE
     Dosage: 300 MG, TOTAL
     Route: 042
     Dates: start: 20111102, end: 20111102

REACTIONS (1)
  - ANAPHYLACTIC REACTION [None]
